FAERS Safety Report 5455529-4 (Version None)
Quarter: 2007Q3

REPORT INFORMATION
  Report Type: 
  Country: None (occurrence: None)
  Receive Date: 20070918
  Receipt Date: 20070910
  Transmission Date: 20080115
  Serious: Yes (Other)
  Sender: FDA-Public Use
  Company Number: FR-JNJFOC-20070902064

PATIENT
  Sex: Male

DRUGS (8)
  1. REMICADE [Suspect]
     Route: 042
  2. REMICADE [Suspect]
     Dosage: 8 INFUSIONS RECEIVED
     Route: 042
  3. REMICADE [Suspect]
     Dosage: 8 INFUSIONS RECEIVED
     Route: 042
  4. REMICADE [Suspect]
     Dosage: 8 INFUSIONS RECEIVED
     Route: 042
  5. REMICADE [Suspect]
     Dosage: 8 INFUSIONS RECEIVED
     Route: 042
  6. REMICADE [Suspect]
     Dosage: 8 INFUSIONS RECEIVED
     Route: 042
  7. REMICADE [Suspect]
     Dosage: 8 INFUSIONS RECEIVED
     Route: 042
  8. REMICADE [Suspect]
     Indication: CROHN'S DISEASE
     Dosage: 8 INFUSIONS RECEIVED
     Route: 042

REACTIONS (4)
  - DIARRHOEA [None]
  - DRUG INEFFECTIVE [None]
  - NEUTROPENIA [None]
  - RED BLOOD CELL SEDIMENTATION RATE INCREASED [None]
